FAERS Safety Report 10061989 (Version 1)
Quarter: 2014Q2

REPORT INFORMATION
  Report Type: Spontaneous
  Country: IT (occurrence: None)
  Receive Date: 20140403
  Receipt Date: 20140403
  Transmission Date: 20141212
  Serious: Yes (Other)
  Sender: FDA-Public Use
  Company Number: AUR-APL-2014-04009

PATIENT
  Age: 73 Year
  Sex: Male
  Weight: 93 kg

DRUGS (8)
  1. AMOXICILLIN [Suspect]
     Indication: PYREXIA
     Route: 048
     Dates: start: 20140301, end: 20140304
  2. ROCEPHIN [Suspect]
     Indication: INFECTION
     Route: 030
     Dates: start: 20140304, end: 20140305
  3. FUROSEMIDE [Concomitant]
  4. ALLOPURINOL [Concomitant]
  5. BISOPROLOL HEMIFUMARATE [Concomitant]
  6. TAMSULOSIN HYDROCHLORIDE [Concomitant]
  7. METFORMIN HYDROCHLORIDE [Concomitant]
  8. ENALAPRIL [Concomitant]

REACTIONS (1)
  - Angioedema [None]
